FAERS Safety Report 21912864 (Version 1)
Quarter: 2023Q1

REPORT INFORMATION
  Report Type: Spontaneous
  Country: US (occurrence: US)
  Receive Date: 20230125
  Receipt Date: 20230125
  Transmission Date: 20230417
  Serious: No
  Sender: FDA-Public Use
  Company Number: US-ALLERGAN-2238863US

PATIENT
  Sex: Female

DRUGS (14)
  1. BOTOX [Suspect]
     Active Substance: ONABOTULINUMTOXINA
     Indication: Movement disorder
     Dosage: UNK UNK, SINGLE
     Dates: start: 20220713, end: 20220713
  2. BOTOX [Suspect]
     Active Substance: ONABOTULINUMTOXINA
     Dosage: UNK UNK, SINGLE
     Dates: start: 20220713, end: 20220713
  3. XANAX [Concomitant]
     Active Substance: ALPRAZOLAM
     Indication: Anxiety
     Dosage: 0.5 MG, TID, AS NEEDED FOR UP TO 90 DAYS
     Route: 048
  4. ECOTRIN [Concomitant]
     Active Substance: ASPIRIN
  5. SOMA [Concomitant]
     Active Substance: CARISOPRODOL
     Indication: Muscle spasms
     Dosage: 350 MG, TID, AS NEEDED FOR UP TO 30 DAYS
     Route: 048
  6. SOMA [Concomitant]
     Active Substance: CARISOPRODOL
     Dosage: 350 MG, BID, AS NEEDED FOR UP TO 90 DAYS
     Route: 048
  7. ADVIL [Concomitant]
     Active Substance: IBUPROFEN
     Indication: Pain
     Dosage: 800 MG, Q8HR, AS NEEDED
     Route: 048
  8. CLARITIN [Concomitant]
     Active Substance: LORATADINE
  9. MELATONIN [Concomitant]
     Active Substance: MELATONIN
  10. PATADAY [Concomitant]
     Active Substance: OLOPATADINE HYDROCHLORIDE
  11. DELTASONE [Concomitant]
     Active Substance: PREDNISONE
  12. MAXALT [Concomitant]
     Active Substance: RIZATRIPTAN BENZOATE
  13. VALTREX [Concomitant]
     Active Substance: VALACYCLOVIR HYDROCHLORIDE
  14. VITAMIN D3 [Concomitant]
     Active Substance: CHOLECALCIFEROL
     Route: 048

REACTIONS (10)
  - Off label use [Unknown]
  - Bruxism [Unknown]
  - Migraine without aura [Unknown]
  - Occipital neuralgia [Unknown]
  - Movement disorder [Unknown]
  - Myositis [Unknown]
  - Overweight [Unknown]
  - Muscle spasms [Unknown]
  - Tension headache [Unknown]
  - Pain [Unknown]

NARRATIVE: CASE EVENT DATE: 20220101
